FAERS Safety Report 7915332-X (Version None)
Quarter: 2011Q4

REPORT INFORMATION
  Report Type: 
  Country: None (occurrence: None)
  Receive Date: 20111115
  Receipt Date: 20111107
  Transmission Date: 20120403
  Serious: Yes (Other)
  Sender: FDA-Public Use
  Company Number: PHEH2011US03281

PATIENT
  Sex: Female

DRUGS (3)
  1. TAMOXIFEN CITRATE [Concomitant]
  2. COUMADIN [Concomitant]
  3. AREDIA [Suspect]

REACTIONS (3)
  - INTERVERTEBRAL DISC PROTRUSION [None]
  - CATARACT [None]
  - ATELECTASIS [None]
